FAERS Safety Report 6653063-7 (Version None)
Quarter: 2010Q1

REPORT INFORMATION
  Report Type: 
  Country: None (occurrence: None)
  Receive Date: 20100326
  Receipt Date: 20100318
  Transmission Date: 20100710
  Serious: Yes (Other)
  Sender: FDA-Public Use
  Company Number: PHHY2010US17390

PATIENT
  Sex: Female

DRUGS (1)
  1. RECLAST [Suspect]
     Indication: OSTEOPOROSIS
     Dosage: ONCE A YEAR
     Route: 042

REACTIONS (3)
  - DEHYDRATION [None]
  - LOSS OF CONSCIOUSNESS [None]
  - SYNCOPE [None]
